FAERS Safety Report 8778968 (Version 3)
Quarter: 2013Q1

REPORT INFORMATION
  Report Type: Spontaneous
  Country: CA (occurrence: CA)
  Receive Date: 20120912
  Receipt Date: 20130312
  Transmission Date: 20140127
  Serious: Yes (Disabling, Other)
  Sender: FDA-Public Use
  Company Number: CA-BAYER-2012-094547

PATIENT
  Age: 64 Year
  Sex: Female

DRUGS (6)
  1. CIPRO [Suspect]
     Indication: CYSTITIS
     Dosage: 500 MG, BID
     Route: 048
     Dates: start: 20120216, end: 20120223
  2. COZAAR [Concomitant]
  3. MIACALCIN [Concomitant]
  4. CALTRATE [Concomitant]
  5. GLYCINE MAX [Concomitant]
  6. VITAMIN D [Concomitant]

REACTIONS (9)
  - Blood pressure increased [Recovered/Resolved]
  - Anxiety [Recovered/Resolved]
  - Electrocardiogram abnormal [Recovered/Resolved]
  - Feeling cold [Recovered/Resolved]
  - Hypoaesthesia [Recovered/Resolved]
  - Muscle spasms [Recovered/Resolved]
  - Stress echocardiogram abnormal [Recovered/Resolved]
  - Palpitations [None]
  - Supraventricular tachycardia [None]
